FAERS Safety Report 10234724 (Version 1)
Quarter: 2014Q2

REPORT INFORMATION
  Report Type: Spontaneous
  Country: US (occurrence: None)
  Receive Date: 20140506
  Receipt Date: 20140506
  Transmission Date: 20141212
  Serious: Yes (Other)
  Sender: FDA-Public Use
  Company Number: 1274417

PATIENT
  Sex: 0

DRUGS (4)
  1. AVASTIN (BEVACIZUMAB) [Suspect]
     Indication: COLORECTAL CANCER METASTATIC
  2. FOLINIC ACID (FOLINIC ACID) [Concomitant]
  3. FLUOROURACIL (FLUOROURACIL) [Concomitant]
  4. IRINOTECAN (IRINOTECAN) [Concomitant]

REACTIONS (1)
  - Venous thrombosis [None]
